FAERS Safety Report 15298669 (Version 1)
Quarter: 2018Q3

REPORT INFORMATION
  Report Type: Spontaneous
  Country: FR (occurrence: FR)
  Receive Date: 20180820
  Receipt Date: 20180820
  Transmission Date: 20181010
  Serious: Yes (Death, Other)
  Sender: FDA-Public Use
  Company Number: FR-NAPPMUNDI-GBR-2012-0010583

PATIENT
  Age: 70 Year
  Sex: Female

DRUGS (3)
  1. HYPNOVEL                           /00634103/ [Suspect]
     Active Substance: MIDAZOLAM HYDROCHLORIDE
     Indication: PRODUCT USED FOR UNKNOWN INDICATION
     Route: 065
  2. OXYNORM SOLUTION INJECTABLE [Suspect]
     Active Substance: OXYCODONE HYDROCHLORIDE
     Indication: PAIN
     Dosage: 50 MG, DAILY
     Route: 051
     Dates: start: 20120427, end: 20120428
  3. KETAMINE [Suspect]
     Active Substance: KETAMINE
     Indication: PAIN
     Route: 065

REACTIONS (2)
  - Malignant neoplasm progression [Fatal]
  - Coma [Recovered/Resolved]

NARRATIVE: CASE EVENT DATE: 20120428
